FAERS Safety Report 21789844 (Version 1)
Quarter: 2022Q4

REPORT INFORMATION
  Report Type: Report from Study
  Country: US (occurrence: US)
  Receive Date: 20221228
  Receipt Date: 20221228
  Transmission Date: 20230112
  Serious: No
  Sender: FDA-Public Use
  Company Number: US-ABBVIE-4207689

PATIENT
  Sex: Female

DRUGS (1)
  1. HUMIRA [Suspect]
     Active Substance: ADALIMUMAB
     Indication: Hidradenitis
     Route: 058
     Dates: start: 20221103

REACTIONS (4)
  - Skin laceration [Recovering/Resolving]
  - Nausea [Recovering/Resolving]
  - Hyperphagia [Recovering/Resolving]
  - Impaired healing [Recovering/Resolving]
